FAERS Safety Report 16786028 (Version 2)
Quarter: 2020Q3

REPORT INFORMATION
  Report Type: Spontaneous
  Country: JP (occurrence: JP)
  Receive Date: 20190909
  Receipt Date: 20200710
  Transmission Date: 20201102
  Serious: Yes (Death, Hospitalization, Other)
  Sender: FDA-Public Use
  Company Number: JP-ACTELION-A-CH2019-195047

PATIENT
  Age: 79 Year
  Sex: Female

DRUGS (1)
  1. EPOPROSTENOL SODIUM. [Suspect]
     Active Substance: EPOPROSTENOL SODIUM
     Indication: PULMONARY ARTERIAL HYPERTENSION
     Route: 042

REACTIONS (10)
  - Duodenal ulcer perforation [Fatal]
  - Chronic kidney disease [Unknown]
  - Right ventricular dilatation [Unknown]
  - Myocardial ischaemia [Unknown]
  - Haemodialysis [Unknown]
  - Abdominal pain [Fatal]
  - Cardiac failure congestive [Unknown]
  - Peritonitis [Fatal]
  - Right ventricular dysfunction [Unknown]
  - Right ventricular hypertrophy [Unknown]
